FAERS Safety Report 17877601 (Version 1)
Quarter: 2020Q2

REPORT INFORMATION
  Report Type: Spontaneous
  Country: JP (occurrence: JP)
  Receive Date: 20200609
  Receipt Date: 20200609
  Transmission Date: 20200714
  Serious: Yes (Life-Threatening)
  Sender: FDA-Public Use
  Company Number: JP-PFIZER INC-2020222434

PATIENT
  Age: 1 Year
  Sex: Male
  Weight: 9.5 kg

DRUGS (6)
  1. PREDONINE [PREDNISOLONE SODIUM SUCCINATE] [Suspect]
     Active Substance: PREDNISOLONE SODIUM SUCCINATE
     Dosage: 5 MG, 1X/DAY
     Route: 041
     Dates: start: 20200426, end: 20200426
  2. VENOGLOBULIN IH [Concomitant]
     Active Substance: HUMAN IMMUNOGLOBULIN G
     Dosage: UNK
     Route: 042
     Dates: start: 20200419, end: 20200419
  3. VENOGLOBULIN IH [Concomitant]
     Active Substance: HUMAN IMMUNOGLOBULIN G
     Dosage: UNK
     Route: 042
     Dates: start: 20200427, end: 20200427
  4. SOLU-MEDROL [Suspect]
     Active Substance: METHYLPREDNISOLONE SODIUM SUCCINATE
     Indication: KAWASAKI^S DISEASE
     Dosage: 250 MG, 1X/DAY
     Route: 041
     Dates: start: 20200421, end: 20200422
  5. PREDONINE [PREDNISOLONE SODIUM SUCCINATE] [Suspect]
     Active Substance: PREDNISOLONE SODIUM SUCCINATE
     Indication: STEROID THERAPY
     Dosage: 5 MG, 2X/DAY
     Route: 041
     Dates: start: 20200423, end: 20200425
  6. VENOGLOBULIN IH [Concomitant]
     Active Substance: HUMAN IMMUNOGLOBULIN G
     Dosage: UNK
     Route: 042
     Dates: start: 20200417, end: 20200417

REACTIONS (2)
  - Coronary artery dilatation [Unknown]
  - Coronary artery aneurysm [Not Recovered/Not Resolved]

NARRATIVE: CASE EVENT DATE: 20200430
